FAERS Safety Report 4613272-5 (Version None)
Quarter: 2005Q1

REPORT INFORMATION
  Report Type: 
  Country: None (occurrence: None)
  Receive Date: 20050315
  Receipt Date: 20050301
  Transmission Date: 20050727
  Serious: Yes (Hospitalization)
  Sender: FDA-Public Use
  Company Number: DSA_25910_2005

PATIENT
  Age: 41 Year
  Sex: Female

DRUGS (2)
  1. TAVOR [Suspect]
     Dosage: 8 MG ONCE PO
     Route: 048
     Dates: start: 20050208, end: 20050208
  2. STANGYL [Suspect]
     Dosage: 800 MG ONCE PO
     Route: 048
     Dates: start: 20050208, end: 20050208

REACTIONS (5)
  - AREFLEXIA [None]
  - COMA [None]
  - HYPOTONIA [None]
  - INTENTIONAL MISUSE [None]
  - TACHYCARDIA [None]
